FAERS Safety Report 13575427 (Version 1)
Quarter: 2017Q2

REPORT INFORMATION
  Report Type: Spontaneous
  Country: TR (occurrence: TR)
  Receive Date: 20170524
  Receipt Date: 20170524
  Transmission Date: 20170830
  Serious: Yes (Other)
  Sender: FDA-Public Use
  Company Number: TR-STRIDES ARCOLAB LIMITED-2017SP007951

PATIENT

DRUGS (1)
  1. IMIQUIMOD. [Suspect]
     Active Substance: IMIQUIMOD
     Indication: BASAL CELL CARCINOMA
     Dosage: ONCE A DAY, FIVE TIMES A WEEK, AT BED TIME
     Route: 061

REACTIONS (11)
  - Application site ulcer [Recovered/Resolved]
  - Eye irritation [Recovered/Resolved]
  - Eye pruritus [Recovered/Resolved]
  - Conjunctival hyperaemia [Recovered/Resolved]
  - Punctate keratitis [Recovered/Resolved]
  - Application site erythema [Recovered/Resolved]
  - Application site inflammation [Recovered/Resolved]
  - Lacrimation increased [Recovered/Resolved]
  - Application site erosion [Recovered/Resolved]
  - Off label use [Unknown]
  - Scab [Recovered/Resolved]
